FAERS Safety Report 6648112-6 (Version None)
Quarter: 2010Q1

REPORT INFORMATION
  Report Type: 
  Country: None (occurrence: None)
  Receive Date: 20100324
  Receipt Date: 20100310
  Transmission Date: 20100710
  Serious: No
  Sender: FDA-Public Use
  Company Number: US-JNJFOC-20100303388

PATIENT
  Sex: Male
  Weight: 65.77 kg

DRUGS (7)
  1. FENTANYL-100 [Suspect]
     Indication: BACK PAIN
     Route: 062
  2. FENTANYL-100 [Suspect]
     Route: 062
  3. FENTANYL-100 [Suspect]
     Route: 062
  4. LYRICA [Concomitant]
     Indication: NEURALGIA
     Route: 048
  5. LYRICA [Concomitant]
     Route: 048
  6. LYRICA [Concomitant]
     Indication: BREAKTHROUGH PAIN
     Route: 048
  7. LYRICA [Concomitant]
     Route: 048

REACTIONS (4)
  - DERMATITIS CONTACT [None]
  - DRUG EFFECT DECREASED [None]
  - PRODUCT QUALITY ISSUE [None]
  - WRONG TECHNIQUE IN DRUG USAGE PROCESS [None]
